FAERS Safety Report 16774433 (Version 4)
Quarter: 2020Q2

REPORT INFORMATION
  Report Type: Report from Study
  Country: None (occurrence: US)
  Receive Date: 20190905
  Receipt Date: 20200406
  Transmission Date: 20200713
  Serious: Yes (Death, Other)
  Sender: FDA-Public Use
  Company Number: US-ABBVIE-19K-163-2767348-00

PATIENT
  Age: 70 Year
  Sex: Male
  Weight: 63.56 kg

DRUGS (7)
  1. VENCLEXTA [Suspect]
     Active Substance: VENETOCLAX
     Indication: CHRONIC MYELOMONOCYTIC LEUKAEMIA
     Dosage: TAKE 4 TABLET BY MOUTH EVERY DAY, TAKE EACH DOSE WITH MEAL AND WATER AT SAME TIME EACH DAY
     Route: 048
     Dates: start: 201903
  2. DACOGEN [Concomitant]
     Active Substance: DECITABINE
     Indication: CHRONIC LYMPHOCYTIC LEUKAEMIA
  3. VENCLEXTA [Suspect]
     Active Substance: VENETOCLAX
     Indication: ANAEMIA
  4. PERCOCET [Concomitant]
     Active Substance: ACETAMINOPHEN\OXYCODONE HYDROCHLORIDE
     Indication: PAIN IN EXTREMITY
  5. VENCLEXTA [Suspect]
     Active Substance: VENETOCLAX
     Indication: CHRONIC LYMPHOCYTIC LEUKAEMIA
     Dosage: TAKE 4 TABLET BY MOUTH EVERY DAY WITH MEALS
     Route: 048
     Dates: start: 201902, end: 2019
  6. GABAPENTIN. [Concomitant]
     Active Substance: GABAPENTIN
     Indication: PAIN IN EXTREMITY
     Dosage: DOSE IS 3 CAPS 3 OR 4 TIMES A DAY AS NEEDED
     Route: 048
  7. VENCLEXTA [Suspect]
     Active Substance: VENETOCLAX
     Indication: CHRONIC KIDNEY DISEASE

REACTIONS (8)
  - Platelet count decreased [Not Recovered/Not Resolved]
  - Gait disturbance [Unknown]
  - Limb injury [Unknown]
  - Cardiovascular disorder [Unknown]
  - Appendicitis [Recovered/Resolved]
  - Death [Fatal]
  - Haemoglobin decreased [Not Recovered/Not Resolved]
  - White blood cell count decreased [Unknown]

NARRATIVE: CASE EVENT DATE: 2019
